FAERS Safety Report 19465356 (Version 1)
Quarter: 2021Q2

REPORT INFORMATION
  Report Type: Report from Study
  Country: US (occurrence: US)
  Receive Date: 20210624
  Receipt Date: 20210624
  Transmission Date: 20210717
  Serious: Yes (Hospitalization)
  Sender: FDA-Public Use
  Company Number: US-SHIRE-US202013094

PATIENT
  Age: 61 Year
  Sex: Male

DRUGS (9)
  1. TEDUGLUTIDE [Suspect]
     Active Substance: TEDUGLUTIDE
     Indication: COLON CANCER
     Dosage: 0.3800 UNIT UNKNOWN, 1X/DAY:QD
     Route: 050
     Dates: start: 20210610
  2. TEDUGLUTIDE [Suspect]
     Active Substance: TEDUGLUTIDE
     Indication: COLON CANCER
     Dosage: 0.3800 UNIT UNKNOWN, 1X/DAY:QD
     Route: 050
     Dates: start: 20210610
  3. TEDUGLUTIDE [Suspect]
     Active Substance: TEDUGLUTIDE
     Indication: SHORT-BOWEL SYNDROME
     Dosage: 1.9 MILLIGRAM, QD
     Route: 058
     Dates: start: 20190606
  4. TEDUGLUTIDE [Suspect]
     Active Substance: TEDUGLUTIDE
     Indication: SHORT-BOWEL SYNDROME
     Dosage: 1.9 MILLIGRAM, QD
     Route: 058
     Dates: start: 20190606
  5. TEDUGLUTIDE [Suspect]
     Active Substance: TEDUGLUTIDE
     Indication: SHORT-BOWEL SYNDROME
     Dosage: 1.9 MILLIGRAM, QD
     Route: 058
     Dates: start: 20190606
  6. POTASSIUM [Concomitant]
     Active Substance: POTASSIUM
     Indication: PRODUCT USED FOR UNKNOWN INDICATION
  7. TEDUGLUTIDE [Suspect]
     Active Substance: TEDUGLUTIDE
     Indication: COLON CANCER
     Dosage: 0.3800 UNIT UNKNOWN, 1X/DAY:QD
     Route: 050
     Dates: start: 20210610
  8. TEDUGLUTIDE [Suspect]
     Active Substance: TEDUGLUTIDE
     Indication: SHORT-BOWEL SYNDROME
     Dosage: 1.9 MILLIGRAM, QD
     Route: 058
     Dates: start: 20190606
  9. TEDUGLUTIDE [Suspect]
     Active Substance: TEDUGLUTIDE
     Indication: COLON CANCER
     Dosage: 0.3800 UNIT UNKNOWN, 1X/DAY:QD
     Route: 050
     Dates: start: 20210610

REACTIONS (5)
  - Vomiting [Unknown]
  - Dehydration [Recovered/Resolved]
  - Product use in unapproved indication [Unknown]
  - Electrolyte imbalance [Unknown]
  - Hospitalisation [Unknown]

NARRATIVE: CASE EVENT DATE: 20200326
